FAERS Safety Report 4430557-6 (Version None)
Quarter: 2004Q3

REPORT INFORMATION
  Report Type: 
  Country: None (occurrence: None)
  Receive Date: 20040818
  Receipt Date: 20040816
  Transmission Date: 20050211
  Serious: Yes (Other)
  Sender: FDA-Public Use
  Company Number: 2004-07-0070

PATIENT
  Age: 54 Year
  Sex: Male
  Weight: 53 kg

DRUGS (2)
  1. REBETOL [Suspect]
     Indication: HEPATITIS C
     Dosage: 600 MG ORAL
     Route: 048
     Dates: start: 20040204, end: 20040802
  2. INTRON A [Suspect]
     Indication: HEPATITIS C
     Dosage: 10 MU-3 MU INTRAMUSCULAR
     Route: 030
     Dates: start: 20040204, end: 20040802

REACTIONS (2)
  - RETINOPATHY [None]
  - VISUAL ACUITY REDUCED [None]
